FAERS Safety Report 5168034-X (Version None)
Quarter: 2006Q4

REPORT INFORMATION
  Report Type: 
  Country: None (occurrence: None)
  Receive Date: 20061208
  Receipt Date: 20060329
  Transmission Date: 20070319
  Serious: No
  Sender: FDA-Public Use
  Company Number: US-GLAXOSMITHKLINE-A0599523A

PATIENT
  Age: 50 Year
  Sex: Female

DRUGS (3)
  1. AVANDAMET [Suspect]
     Dosage: 1TAB TWICE PER DAY
     Route: 048
  2. AVANDIA [Suspect]
     Dosage: 2MG PER DAY
     Route: 048
  3. DIOVAN HCT [Concomitant]

REACTIONS (3)
  - INCORRECT DOSE ADMINISTERED [None]
  - WEIGHT DECREASED [None]
  - WEIGHT INCREASED [None]
